FAERS Safety Report 4924982-4 (Version None)
Quarter: 2006Q1

REPORT INFORMATION
  Report Type: 
  Country: None (occurrence: None)
  Receive Date: 20060222
  Receipt Date: 20060213
  Transmission Date: 20060701
  Serious: No
  Sender: FDA-Public Use
  Company Number: 06H-161-0305193-00

PATIENT
  Age: 22 Year
  Sex: Female

DRUGS (1)
  1. LIDOCAINE HCL [Suspect]
     Indication: EPIDURAL ANAESTHESIA
     Dosage: 4 ML, EPIDURAL
     Route: 008

REACTIONS (6)
  - CAESAREAN SECTION [None]
  - DRUG EXPOSURE DURING PREGNANCY [None]
  - HYPOTENSION [None]
  - RESPIRATORY ARREST [None]
  - SPINAL ANAESTHESIA [None]
  - UTERINE HYPERTONUS [None]
